FAERS Safety Report 20957921 (Version 1)
Quarter: 2022Q2

REPORT INFORMATION
  Report Type: Spontaneous
  Country: AU (occurrence: None)
  Receive Date: 20220614
  Receipt Date: 20220614
  Transmission Date: 20220721
  Serious: Yes (Hospitalization, Disabling)
  Sender: FDA-Public Use
  Company Number: None

PATIENT
  Sex: Female
  Weight: 117 kg

DRUGS (9)
  1. SAXENDA [Suspect]
     Active Substance: LIRAGLUTIDE
  2. VALPROATE SODIUM [Concomitant]
     Active Substance: VALPROATE SODIUM
  3. QUETIAPINE [Concomitant]
     Active Substance: QUETIAPINE
  4. FLUOXETINE [Concomitant]
     Active Substance: FLUOXETINE HYDROCHLORIDE
  5. FLUDROCORTISONE [Concomitant]
     Active Substance: FLUDROCORTISONE
  6. IRON + MULTIVITAMIN SUPPLEMENTS [Concomitant]
  7. LAXATIVES [Concomitant]
  8. ADVIL [Concomitant]
     Active Substance: IBUPROFEN
  9. BUTYLSCOPOLAMINE BROMIDE [Concomitant]
     Active Substance: BUTYLSCOPOLAMINE BROMIDE

REACTIONS (5)
  - Orthostatic intolerance [None]
  - Autonomic nervous system imbalance [None]
  - Syncope [None]
  - Syncope [None]
  - Seizure [None]

NARRATIVE: CASE EVENT DATE: 20220601
